FAERS Safety Report 13321478 (Version 1)
Quarter: 2017Q1

REPORT INFORMATION
  Report Type: Report from Study
  Country: RO (occurrence: RO)
  Receive Date: 20170309
  Receipt Date: 20170309
  Transmission Date: 20170428
  Serious: Yes (Other)
  Sender: FDA-Public Use
  Company Number: PHHY2016RO146663

PATIENT
  Age: 66 Year
  Sex: Female

DRUGS (1)
  1. SIGNIFOR [Suspect]
     Active Substance: PASIREOTIDE
     Indication: PITUITARY-DEPENDENT CUSHING^S SYNDROME
     Dosage: 1.2 MG, UNK
     Route: 058
     Dates: start: 20160610

REACTIONS (4)
  - Diabetes mellitus [Unknown]
  - Depressed mood [Unknown]
  - Insomnia [Unknown]
  - Depression [Not Recovered/Not Resolved]

NARRATIVE: CASE EVENT DATE: 20160908
